FAERS Safety Report 23233258 (Version 1)
Quarter: 2023Q4

REPORT INFORMATION
  Report Type: Report from Study
  Country: BR (occurrence: BR)
  Receive Date: 20231128
  Receipt Date: 20231128
  Transmission Date: 20240109
  Serious: Yes (Other)
  Sender: FDA-Public Use
  Company Number: BR-JNJFOC-20231163819

PATIENT
  Age: 17 Year
  Sex: Male
  Weight: 47 kg

DRUGS (2)
  1. REMICADE [Suspect]
     Active Substance: INFLIXIMAB
     Indication: Colitis ulcerative
     Route: 041
  2. INFLIXIMAB [Suspect]
     Active Substance: INFLIXIMAB
     Indication: Colitis ulcerative
     Dosage: LAST INFUSION WAS 23-OCT-2023
     Route: 041

REACTIONS (3)
  - Gastric haemorrhage [Unknown]
  - Malaise [Unknown]
  - Off label use [Unknown]
